FAERS Safety Report 24786579 (Version 1)
Quarter: 2024Q4

REPORT INFORMATION
  Report Type: Spontaneous
  Country: US (occurrence: US)
  Receive Date: 20241230
  Receipt Date: 20241230
  Transmission Date: 20250114
  Serious: No
  Sender: CELLTRION
  Company Number: US-CELLTRION INC.-2024US001099

PATIENT

DRUGS (19)
  1. RITUXIMAB [Suspect]
     Active Substance: RITUXIMAB
     Indication: Thrombotic thrombocytopenic purpura
     Dosage: 800 MG, ONCE-WEEKLY (375 MILLIGRAMS PER SQUARE METER)
  2. RITUXIMAB [Suspect]
     Active Substance: RITUXIMAB
     Indication: Prophylaxis
     Dosage: 800 MG, ONCE A WEEK FOR FOUR TOTAL WEEKS
  3. RITUXIMAB [Suspect]
     Active Substance: RITUXIMAB
     Dosage: ONCE WEEKLY
  4. RITUXIMAB [Suspect]
     Active Substance: RITUXIMAB
     Dosage: ONCE WEEKLY
  5. RITUXIMAB [Suspect]
     Active Substance: RITUXIMAB
     Dosage: UNK
  6. CAPLACIZUMAB [Suspect]
     Active Substance: CAPLACIZUMAB
     Indication: Thrombotic thrombocytopenic purpura
     Dosage: 11 MG, FEW HOURS AFTER EACH PLEX SESSION,  DAILY FOR 30 DAYS
  7. CAPLACIZUMAB [Suspect]
     Active Substance: CAPLACIZUMAB
     Indication: Prophylaxis
     Dosage: 11 MG, FEW HOURS AFTER EACH PLEX SESSION,  DAILY FOR 30 DAYS
  8. CAPLACIZUMAB [Suspect]
     Active Substance: CAPLACIZUMAB
     Dosage: 11 MG, FEW HOURS AFTER EACH PLEX SESSION,  DAILY FOR 30 DAYS
  9. CAPLACIZUMAB [Suspect]
     Active Substance: CAPLACIZUMAB
     Dosage: 11 MG, FEW HOURS AFTER EACH PLEX SESSION,  DAILY FOR 30 DAYS
  10. CAPLACIZUMAB [Suspect]
     Active Substance: CAPLACIZUMAB
     Dosage: 11 MG, FEW HOURS AFTER EACH PLEX SESSION,  DAILY FOR 30 DAYS
  11. CAPLACIZUMAB [Suspect]
     Active Substance: CAPLACIZUMAB
     Dosage: UNK
  12. METHYLPREDNISOLONE [Suspect]
     Active Substance: METHYLPREDNISOLONE
     Indication: Thrombotic thrombocytopenic purpura
     Dosage: 1000 MG, DAILY (ON HOSPITAL DAY TWO; PATIENT WAS TRANSITIONED TO METHYLPREDNISOLONE FOR INCREASING C
  13. METHYLPREDNISOLONE [Suspect]
     Active Substance: METHYLPREDNISOLONE
     Dosage: 10 MG/KG/DAY WAS ADMINISTERED FOR THE FIRST THREE DAYS
  14. PREDNISONE [Suspect]
     Active Substance: PREDNISONE
     Indication: Thrombotic thrombocytopenic purpura
     Dosage: 60 MG TWICE DAILY (INITIALLY GIVEN FOR SUSPICIONS OF TTP)
  15. PREDNISONE [Suspect]
     Active Substance: PREDNISONE
     Dosage: 1 MG/KG/DAY DAILY UNTIL THE FIFTH AND LAST PLEX SESSION ON DAY 12
  16. CEFDINIR [Concomitant]
     Active Substance: CEFDINIR
     Indication: Urinary tract infection
     Dosage: 300 MG, BID
     Route: 048
  17. LORAZEPAM [Concomitant]
     Active Substance: LORAZEPAM
     Indication: Generalised tonic-clonic seizure
     Dosage: SINGLE DOSE
     Route: 042
  18. DEXMEDETOMIDINE [Concomitant]
     Active Substance: DEXMEDETOMIDINE
     Indication: Sedation
  19. LEVETIRACETAM [Concomitant]
     Active Substance: LEVETIRACETAM
     Indication: Seizure prophylaxis
     Dosage: 1000 MG, BID
     Route: 042

REACTIONS (1)
  - Drug effective for unapproved indication [Unknown]
